FAERS Safety Report 11563227 (Version 3)
Quarter: 2016Q3

REPORT INFORMATION
  Report Type: Report from Study
  Country: US (occurrence: US)
  Receive Date: 20150924
  Receipt Date: 20160824
  Transmission Date: 20161109
  Serious: Yes (Other)
  Sender: FDA-Public Use
  Company Number: US-AEGERION PHARMACEUTICALS-AEGR000924

PATIENT
  Age: 48 Year
  Sex: Female
  Weight: 81.63 kg

DRUGS (1)
  1. JUXTAPID [Suspect]
     Active Substance: LOMITAPIDE MESYLATE
     Indication: TYPE IIA HYPERLIPIDAEMIA
     Dosage: 5 MG, QD
     Route: 048
     Dates: start: 20141107

REACTIONS (13)
  - Mobility decreased [Unknown]
  - Influenza [Not Recovered/Not Resolved]
  - Neurostimulator implantation [Unknown]
  - Liver function test increased [Unknown]
  - Incision site pain [Unknown]
  - Fall [Unknown]
  - Haematochezia [Unknown]
  - Vomiting [Unknown]
  - Ligament rupture [Unknown]
  - Foot fracture [Unknown]
  - Dysuria [Unknown]
  - Drug dose omission [Unknown]
  - Diarrhoea [Not Recovered/Not Resolved]

NARRATIVE: CASE EVENT DATE: 20141110
